FAERS Safety Report 17590830 (Version 1)
Quarter: 2020Q1

REPORT INFORMATION
  Report Type: Spontaneous
  Country: US (occurrence: US)
  Receive Date: 20200325
  Receipt Date: 20200325
  Transmission Date: 20200409
  Serious: Yes (Life-Threatening, Hospitalization)
  Sender: FDA-Public Use
  Company Number: None

PATIENT
  Age: 63 Year
  Sex: Male
  Weight: 72 kg

DRUGS (1)
  1. DISULFIRAM (DISULFIRAM 250MG TAB) [Suspect]
     Active Substance: DISULFIRAM
     Indication: ALCOHOL USE DISORDER
     Route: 048
     Dates: start: 20190322, end: 20190325

REACTIONS (5)
  - Anuria [None]
  - Alcohol abuse [None]
  - Hypotension [None]
  - Somnolence [None]
  - Flushing [None]

NARRATIVE: CASE EVENT DATE: 20190325
